FAERS Safety Report 5483587-X (Version None)
Quarter: 2007Q4

REPORT INFORMATION
  Report Type: 
  Country: None (occurrence: None)
  Receive Date: 20071010
  Receipt Date: 20071010
  Transmission Date: 20080405
  Serious: Yes (Death, Life-Threatening, Hospitalization)
  Sender: FDA-Public Use
  Company Number: None

PATIENT
  Age: 68 Year
  Sex: Female
  Weight: 59.8748 kg

DRUGS (16)
  1. VECTIBIX [Suspect]
     Indication: COLON CANCER METASTATIC
     Dosage: 180 MG EVERY 2 WEEKS IV
     Route: 042
     Dates: start: 20070529, end: 20070814
  2. POTASSIUM CHLORIDE [Concomitant]
  3. NORVASC [Concomitant]
  4. REGLAN [Concomitant]
  5. PREDNISONE [Concomitant]
  6. PLAQUENIL [Concomitant]
  7. SYNTHROID [Concomitant]
  8. NEURONTIN [Concomitant]
  9. OXYCODONE HCL [Concomitant]
  10. NEXIUM [Concomitant]
  11. CELEBREX [Concomitant]
  12. REQUIP [Concomitant]
  13. PULMICORT [Concomitant]
  14. ZOFRAN [Concomitant]
  15. PHENERGAN HCL [Concomitant]
  16. DECADRON [Concomitant]

REACTIONS (5)
  - ATRIAL FIBRILLATION [None]
  - HYPOTENSION [None]
  - LUNG INFILTRATION [None]
  - RESPIRATORY FAILURE [None]
  - SEPSIS [None]
